FAERS Safety Report 10499091 (Version 1)
Quarter: 2014Q4

REPORT INFORMATION
  Report Type: Spontaneous
  Country: US (occurrence: US)
  Receive Date: 20141006
  Receipt Date: 20141006
  Transmission Date: 20150528
  Serious: No
  Sender: FDA-Public Use
  Company Number: US-AMGEN INC.-USASP2014001790

PATIENT
  Sex: Female

DRUGS (1)
  1. XGEVA [Suspect]
     Active Substance: DENOSUMAB
     Indication: BENIGN BONE NEOPLASM
     Dosage: UNK
     Route: 065
     Dates: start: 201312

REACTIONS (2)
  - Tendon pain [Unknown]
  - Fatigue [Unknown]

NARRATIVE: CASE EVENT DATE: 201401
